FAERS Safety Report 5680616-5 (Version None)
Quarter: 2008Q1

REPORT INFORMATION
  Report Type: 
  Country: None (occurrence: None)
  Receive Date: 20080326
  Receipt Date: 20080321
  Transmission Date: 20080703
  Serious: Yes (Hospitalization)
  Sender: FDA-Public Use
  Company Number: FR-BRISTOL-MYERS SQUIBB COMPANY-14054282

PATIENT
  Age: 35 Year
  Sex: Female

DRUGS (6)
  1. BLINDED: ABATACEPT [Suspect]
     Indication: CROHN'S DISEASE
     Route: 042
     Dates: start: 20080107
  2. BLINDED: PLACEBO [Suspect]
     Indication: CROHN'S DISEASE
     Route: 042
     Dates: start: 20080107
  3. IMUREL [Concomitant]
     Dates: start: 20051114
  4. RIFINAH [Concomitant]
     Dates: start: 20071224
  5. ACETAMINOPHEN [Concomitant]
     Dates: start: 20040101
  6. RIMIFON [Concomitant]
     Dates: start: 20071224

REACTIONS (2)
  - ANXIETY [None]
  - TRANSIENT ISCHAEMIC ATTACK [None]
